FAERS Safety Report 4332215-5 (Version None)
Quarter: 2004Q1

REPORT INFORMATION
  Report Type: 
  Country: None (occurrence: None)
  Receive Date: 20040331
  Receipt Date: 20040318
  Transmission Date: 20041129
  Serious: Yes (Hospitalization)
  Sender: FDA-Public Use
  Company Number: 2004018518

PATIENT
  Age: 50 Year
  Sex: Male

DRUGS (11)
  1. LIPITOR [Suspect]
     Indication: HYPERCHOLESTEROLAEMIA
     Dosage: 10 MG (DAILY), ORAL
     Route: 048
     Dates: start: 20040212
  2. LOXOPROFEN SODIUM (LOXOPROFEN SODIUM) [Concomitant]
  3. ACETYLSALICYLIC ACID SRT [Concomitant]
  4. TICLOPIDINE HCL [Concomitant]
  5. RABEPRAZOLE SODIUM (RABEPRAZOLE SODIUM) [Concomitant]
  6. TEPRENONE (TEPRENONE) [Concomitant]
  7. ISOSORBIDE MONONITRATE [Concomitant]
  8. NICORANDIL (NICORANDIL) [Concomitant]
  9. SENNA LEAF (SENNA LEAF) [Concomitant]
  10. AMLODIPINE BESYLATE [Concomitant]
  11. KETOCONAZOLE [Concomitant]

REACTIONS (1)
  - ECZEMA [None]
